FAERS Safety Report 7046846-5 (Version None)
Quarter: 2010Q3

REPORT INFORMATION
  Report Type: 
  Country: None (occurrence: None)
  Receive Date: 20100902
  Receipt Date: 20091201
  Transmission Date: 20110219
  Serious: Yes (Other)
  Sender: FDA-Public Use
  Company Number: 09-015

PATIENT
  Age: 28 Year
  Sex: Female

DRUGS (4)
  1. XYZAL [Suspect]
     Indication: HYPERSENSITIVITY
     Dosage: SUBCUTANEOUS
     Route: 058
     Dates: start: 20090915
  2. DRAPER [Suspect]
  3. CELESTONE [Suspect]
  4. XOPENER [Concomitant]

REACTIONS (2)
  - LOCAL REACTION [None]
  - NONSPECIFIC REACTION [None]
